FAERS Safety Report 9733390 (Version 1)
Quarter: 2013Q4

REPORT INFORMATION
  Report Type: Spontaneous
  Country: GB (occurrence: GB)
  Receive Date: 20131205
  Receipt Date: 20131205
  Transmission Date: 20140711
  Serious: Yes (Life-Threatening)
  Sender: FDA-Public Use
  Company Number: GB-MERCK-1312GBR000216

PATIENT
  Age: 89 Year
  Sex: Female

DRUGS (4)
  1. MIRTAZAPINE [Suspect]
     Indication: AGITATION
     Dosage: 45 MG, UNK
     Route: 048
     Dates: start: 20130101, end: 20130510
  2. MIRTAZAPINE [Suspect]
     Indication: DEMENTIA
  3. MIRTAZAPINE [Suspect]
     Indication: DEPRESSION
  4. LORAZEPAM [Concomitant]
     Indication: AGITATION
     Dosage: 0.5 MG, UNK
     Route: 048

REACTIONS (2)
  - Sedation [Recovered/Resolved]
  - Drug clearance decreased [Unknown]
